FAERS Safety Report 5524255-5 (Version None)
Quarter: 2007Q4

REPORT INFORMATION
  Report Type: 
  Country: None (occurrence: None)
  Receive Date: 20071121
  Receipt Date: 20071109
  Transmission Date: 20080405
  Serious: Yes (Hospitalization)
  Sender: FDA-Public Use
  Company Number: FR-PFIZER INC-2007095123

PATIENT
  Sex: Male

DRUGS (4)
  1. ZITHROMAX [Suspect]
     Route: 048
     Dates: start: 20060922, end: 20060926
  2. ADVIL LIQUI-GELS [Suspect]
     Route: 048
     Dates: start: 20060922, end: 20060926
  3. LAMISIL [Suspect]
     Route: 048
     Dates: start: 20060926, end: 20061007
  4. COLCHICINE ^HOUDE^ [Suspect]
     Route: 048
     Dates: start: 20061005, end: 20061007

REACTIONS (2)
  - VASCULAR PURPURA [None]
  - VASCULITIS [None]
